FAERS Safety Report 25699880 (Version 1)
Quarter: 2025Q3

REPORT INFORMATION
  Report Type: Spontaneous
  Country: CA (occurrence: CA)
  Receive Date: 20250819
  Receipt Date: 20250819
  Transmission Date: 20251020
  Serious: Yes (Death)
  Sender: ROCHE
  Company Number: CA-ROCHE-10000364299

PATIENT
  Age: 43 Year
  Sex: Female

DRUGS (2)
  1. RITUXIMAB [Suspect]
     Active Substance: RITUXIMAB
     Indication: Rheumatoid arthritis
     Route: 065
  2. RITUXIMAB [Suspect]
     Active Substance: RITUXIMAB
     Route: 065

REACTIONS (44)
  - Dizziness [Fatal]
  - Blister [Fatal]
  - Asthenia [Fatal]
  - Impaired healing [Fatal]
  - Inflammation [Fatal]
  - Night sweats [Fatal]
  - Hypercholesterolaemia [Fatal]
  - Fatigue [Fatal]
  - Dry mouth [Fatal]
  - Weight increased [Fatal]
  - Vomiting [Fatal]
  - Wheezing [Fatal]
  - Synovitis [Fatal]
  - Obesity [Fatal]
  - Hypoaesthesia [Fatal]
  - Hypertension [Fatal]
  - Peripheral venous disease [Fatal]
  - C-reactive protein increased [Fatal]
  - Bursitis [Fatal]
  - Blood cholesterol increased [Fatal]
  - Blepharospasm [Fatal]
  - Gastrooesophageal reflux disease [Fatal]
  - Folliculitis [Fatal]
  - Discomfort [Fatal]
  - Diarrhoea [Fatal]
  - Off label use [Fatal]
  - Pain [Fatal]
  - Depression [Fatal]
  - Irritable bowel syndrome [Fatal]
  - Infusion related reaction [Fatal]
  - Hepatic enzyme [Fatal]
  - Hand deformity [Fatal]
  - Glossodynia [Fatal]
  - Nasopharyngitis [Fatal]
  - Joint swelling [Fatal]
  - Joint range of motion decreased [Fatal]
  - Intentional product use issue [Fatal]
  - Product use in unapproved indication [Fatal]
  - Product quality issue [Fatal]
  - Wound [Fatal]
  - Urticaria [Fatal]
  - Peripheral swelling [Fatal]
  - Drug intolerance [Fatal]
  - Drug ineffective [Fatal]
